FAERS Safety Report 12598867 (Version 1)
Quarter: 2016Q3

REPORT INFORMATION
  Report Type: Spontaneous
  Country: DE (occurrence: DE)
  Receive Date: 20160726
  Receipt Date: 20160726
  Transmission Date: 20161109
  Serious: Yes (Other)
  Sender: FDA-Public Use
  Company Number: DE-MYLANLABS-2014S1010880

PATIENT

DRUGS (1)
  1. PRAVASTATIN. [Suspect]
     Active Substance: PRAVASTATIN
     Indication: HYPERCHOLESTEROLAEMIA
     Dosage: UNK
     Route: 048
     Dates: start: 20130525, end: 20140131

REACTIONS (5)
  - Gastrointestinal pain [Recovering/Resolving]
  - Dyspepsia [Recovering/Resolving]
  - Abdominal distension [Recovering/Resolving]
  - Intestinal obstruction [Recovering/Resolving]
  - Nausea [Recovering/Resolving]

NARRATIVE: CASE EVENT DATE: 2013
